FAERS Safety Report 7725488-X (Version None)
Quarter: 2011Q3

REPORT INFORMATION
  Report Type: 
  Country: None (occurrence: None)
  Receive Date: 20110902
  Receipt Date: 20110713
  Transmission Date: 20111222
  Serious: No
  Sender: FDA-Public Use
  Company Number: US-BRISTOL-MYERS SQUIBB COMPANY-15898497

PATIENT
  Age: 25 Year
  Sex: Male

DRUGS (2)
  1. LIPITOR [Suspect]
  2. KOMBIGLYZE XR [Suspect]
     Dosage: 1 DF = 5/1000 UNIT NOT MENTIONED

REACTIONS (1)
  - HAIR GROWTH ABNORMAL [None]
